FAERS Safety Report 14650365 (Version 1)
Quarter: 2018Q1

REPORT INFORMATION
  Report Type: Spontaneous
  Country: ES (occurrence: ES)
  Receive Date: 20180316
  Receipt Date: 20180316
  Transmission Date: 20180509
  Serious: Yes (Hospitalization, Other)
  Sender: FDA-Public Use
  Company Number: ES-SHIRE-ES201737356

PATIENT

DRUGS (10)
  1. IMUREL                             /00001501/ [Suspect]
     Active Substance: AZATHIOPRINE SODIUM
     Indication: COLITIS ULCERATIVE
     Dosage: 4 DF, 1 TIME DAILY
     Route: 065
     Dates: start: 201006
  2. IMUREL                             /00001501/ [Suspect]
     Active Substance: AZATHIOPRINE SODIUM
     Dosage: 1 DF, DAILY AT BREAKFAST
     Route: 065
  3. 476 (MESALAZINE/MESALAMINE) [Suspect]
     Active Substance: MESALAMINE
     Dosage: UNK
     Route: 048
     Dates: start: 200710, end: 201006
  4. IMUREL                             /00001501/ [Suspect]
     Active Substance: AZATHIOPRINE SODIUM
     Dosage: 1 DF, 1 TIME DAILY AT LUNCH
     Route: 065
     Dates: start: 200903
  5. CLIPPER [Concomitant]
     Active Substance: BECLOMETHASONE DIPROPIONATE
     Indication: COLITIS ULCERATIVE
     Dosage: UNK
     Route: 065
     Dates: start: 200812
  6. 476 (MESALAZINE/MESALAMINE) [Suspect]
     Active Substance: MESALAMINE
     Indication: COLITIS ULCERATIVE
     Dosage: UNK
     Route: 054
     Dates: start: 200710, end: 200909
  7. MESALAZINE [Suspect]
     Active Substance: MESALAMINE
     Indication: COLITIS ULCERATIVE
     Dosage: UNK
     Route: 054
     Dates: start: 200909
  8. SALOFALK                           /00747601/ [Concomitant]
     Active Substance: MESALAMINE
     Indication: COLITIS ULCERATIVE
     Dosage: UNK
     Route: 065
     Dates: start: 201006
  9. LYRICA [Concomitant]
     Active Substance: PREGABALIN
     Indication: BACK PAIN
     Dosage: UNK
     Route: 065
     Dates: start: 200903
  10. ALANERV [Concomitant]
     Active Substance: DIETARY SUPPLEMENT

REACTIONS (12)
  - Pancreatitis acute [Unknown]
  - Nausea [Unknown]
  - Haemolytic uraemic syndrome [Recovered/Resolved]
  - Weight increased [Unknown]
  - Dizziness [Unknown]
  - Fatigue [Unknown]
  - Hypertension [Unknown]
  - Thrombotic thrombocytopenic purpura [Recovered/Resolved]
  - Product use in unapproved indication [Recovered/Resolved]
  - Colitis ulcerative [Unknown]
  - Colitis ulcerative [Unknown]
  - Malaise [Unknown]

NARRATIVE: CASE EVENT DATE: 200903
